FAERS Safety Report 24211144 (Version 2)
Quarter: 2024Q3

REPORT INFORMATION
  Report Type: Spontaneous
  Country: AU (occurrence: None)
  Receive Date: 20240814
  Receipt Date: 20240918
  Transmission Date: 20241016
  Serious: Yes (Other)
  Sender: ASTRAZENECA
  Company Number: 2024A179613

PATIENT
  Sex: Male

DRUGS (2)
  1. BREZTRI [Suspect]
     Active Substance: BUDESONIDE\FORMOTEROL\GLYCOPYRROLATE
     Indication: Respiration abnormal
     Dosage: 160/7.2/5 , 2 PUFFS, TWO TIMES A DAY
     Route: 055
  2. BREZTRI [Suspect]
     Active Substance: BUDESONIDE\FORMOTEROL\GLYCOPYRROLATE
     Indication: Chronic obstructive pulmonary disease
     Dosage: 160/7.2/5 , 2 PUFFS, TWO TIMES A DAY
     Route: 055

REACTIONS (3)
  - Cerebrovascular accident [Unknown]
  - Device use issue [Unknown]
  - Device malfunction [Unknown]
